FAERS Safety Report 22638922 (Version 2)
Quarter: 2023Q2

REPORT INFORMATION
  Report Type: Report from Study
  Country: US (occurrence: US)
  Receive Date: 20230626
  Receipt Date: 20230628
  Transmission Date: 20230721
  Serious: No
  Sender: FDA-Public Use
  Company Number: US-002147023-NVSC2023US143045

PATIENT
  Sex: Female

DRUGS (1)
  1. KESIMPTA [Suspect]
     Active Substance: OFATUMUMAB
     Indication: Product used for unknown indication
     Dosage: UNK
     Route: 065

REACTIONS (6)
  - Hypoaesthesia [Not Recovered/Not Resolved]
  - Diplopia [Not Recovered/Not Resolved]
  - Emotional disorder [Unknown]
  - Crying [Unknown]
  - Chills [Recovered/Resolved]
  - Pyrexia [Not Recovered/Not Resolved]
